FAERS Safety Report 8880731 (Version 8)
Quarter: 2013Q2

REPORT INFORMATION
  Report Type: Report from Study
  Country: BG (occurrence: BG)
  Receive Date: 20121101
  Receipt Date: 20130522
  Transmission Date: 20140414
  Serious: Yes (Hospitalization, Other)
  Sender: FDA-Public Use
  Company Number: BG-CELGENEUS-022-21880-12101533

PATIENT
  Age: 64 Year
  Sex: Female
  Weight: 68 kg

DRUGS (27)
  1. REVLIMID [Suspect]
     Indication: PLASMA CELL MYELOMA RECURRENT
     Dosage: DAY 1-21
     Route: 048
     Dates: start: 20110328, end: 20110417
  2. REVLIMID [Suspect]
     Dosage: DAY 1-21
     Route: 048
     Dates: start: 20110426, end: 20110502
  3. REVLIMID [Suspect]
     Dosage: DAY 1-21
     Route: 048
     Dates: start: 20110510, end: 20111219
  4. REVLIMID [Suspect]
     Dosage: DAY 1-21
     Route: 048
     Dates: start: 20120103, end: 20120123
  5. REVLIMID [Suspect]
     Dosage: DAY 1-16
     Route: 048
     Dates: start: 20120911, end: 20120926
  6. CARFILZOMIB [Suspect]
     Indication: PLASMA CELL MYELOMA RECURRENT
     Dosage: DAY 1-2
     Route: 065
     Dates: start: 20110328, end: 20110329
  7. CARFILZOMIB [Suspect]
     Dosage: DAY 8-9, 15-16
     Route: 065
     Dates: start: 20110404, end: 20110416
  8. CARFILZOMIB [Suspect]
     Dosage: DAY1-2,15-16
     Route: 065
     Dates: start: 20110426, end: 20110427
  9. CARFILZOMIB [Suspect]
     Dosage: DAY1-2,15-16
     Route: 065
     Dates: start: 20110510, end: 20110914
  10. CARFILZOMIB [Suspect]
     Dosage: DAY1-2,15-16
     Route: 065
     Dates: start: 20110927, end: 20111207
  11. CARFILZOMIB [Suspect]
     Dosage: DAY8-9, 16
     Route: 065
     Dates: start: 20111213, end: 20111221
  12. CARFILZOMIB [Suspect]
     Dosage: DAY1-2,15-16
     Route: 065
     Dates: start: 20111221, end: 20120131
  13. CARFILZOMIB [Suspect]
     Dosage: DAY1-2,15-16
     Route: 065
     Dates: start: 20120717, end: 20120801
  14. DEXAMETHASONE [Suspect]
     Indication: PLASMA CELL MYELOMA RECURRENT
     Route: 065
     Dates: start: 20110328, end: 20110418
  15. DEXAMETHASONE [Suspect]
     Indication: CAUDA EQUINA SYNDROME
     Route: 065
     Dates: start: 20120814, end: 20120904
  16. DEXAMETHASONE [Suspect]
     Indication: PARAPARESIS
     Dosage: 4 MILLIGRAM
     Route: 041
     Dates: start: 20120913, end: 20120919
  17. DEXAMETHASONE [Suspect]
     Dosage: 16 MILLIGRAM
     Route: 041
     Dates: start: 20120927, end: 20120929
  18. DEXAMETHASONE [Suspect]
     Route: 065
     Dates: start: 20120911, end: 20121002
  19. DEXAMETHASONE [Suspect]
     Dosage: 8 MILLIGRAM
     Route: 041
     Dates: start: 20121005, end: 20121017
  20. DEXAMETHASONE [Suspect]
     Route: 065
     Dates: start: 20120911, end: 20121002
  21. ACYCLOVIR [Concomitant]
     Indication: ANTIVIRAL PROPHYLAXIS
     Dosage: 800 MILLIGRAM
     Route: 048
     Dates: start: 20110327
  22. ASPIRINE [Concomitant]
     Indication: ANTICOAGULANT THERAPY
     Dosage: 100 MILLIGRAM
     Route: 048
     Dates: start: 20110327
  23. ASPIRINE [Concomitant]
     Indication: ANTIPLATELET THERAPY
  24. CIPROFLOXACIN [Concomitant]
     Indication: ANTIBIOTIC PROPHYLAXIS
     Dosage: 500 MILLIGRAM
     Route: 048
     Dates: start: 20110327
  25. CO-RENAPRIL [Concomitant]
     Indication: HYPERTENSION
     Dosage: 12.5 MILLIGRAM
     Route: 048
     Dates: start: 200810
  26. LANSOPRAZOLE [Concomitant]
     Indication: PRODUCT USED FOR UNKNOWN INDICATION
     Dosage: 15 MILLIGRAM
     Route: 048
     Dates: start: 20110327
  27. ZOMETA [Concomitant]
     Indication: BONE DISORDER
     Route: 048
     Dates: start: 20110327

REACTIONS (3)
  - Paraparesis [Not Recovered/Not Resolved]
  - Cauda equina syndrome [Recovered/Resolved]
  - Anaemia [Recovering/Resolving]
